FAERS Safety Report 9366390 (Version 2)
Quarter: 2013Q3

REPORT INFORMATION
  Report Type: Spontaneous
  Country: US (occurrence: US)
  Receive Date: 20130625
  Receipt Date: 20130813
  Transmission Date: 20140515
  Serious: Yes (Other)
  Sender: FDA-Public Use
  Company Number: US-JNJFOC-20130608656

PATIENT
  Age: 81 Year
  Sex: Male

DRUGS (2)
  1. ZYTIGA [Suspect]
     Indication: PROSTATE CANCER
     Route: 048
     Dates: start: 2013
  2. PREDNISONE [Suspect]
     Indication: PROSTATE CANCER
     Route: 048

REACTIONS (2)
  - Head injury [Recovering/Resolving]
  - Skin infection [Recovering/Resolving]
